FAERS Safety Report 23503756 (Version 1)
Quarter: 2024Q1

REPORT INFORMATION
  Report Type: Spontaneous
  Country: US (occurrence: None)
  Receive Date: 20240208
  Receipt Date: 20240208
  Transmission Date: 20240409
  Serious: Yes (Hospitalization)
  Sender: FDA-Public Use
  Company Number: None

PATIENT
  Age: 15 Year
  Sex: Female
  Weight: 53.3 kg

DRUGS (1)
  1. METHOTREXATE [Suspect]
     Active Substance: METHOTREXATE
     Indication: Acute lymphocytic leukaemia
     Dosage: OTHER ROUTE : INTRATHECAL ;?
     Route: 050
     Dates: start: 20230713

REACTIONS (10)
  - Leukoencephalopathy [None]
  - Adverse drug reaction [None]
  - Hemiparesis [None]
  - Dysarthria [None]
  - Dizziness [None]
  - Tongue disorder [None]
  - Sensory disturbance [None]
  - Aphasia [None]
  - Monoplegia [None]
  - Magnetic resonance imaging head abnormal [None]

NARRATIVE: CASE EVENT DATE: 20231205
